FAERS Safety Report 8487022-9 (Version None)
Quarter: 2012Q3

REPORT INFORMATION
  Report Type: 
  Country: None (occurrence: None)
  Receive Date: 20120704
  Receipt Date: 20120629
  Transmission Date: 20120928
  Serious: Yes (Death, Other)
  Sender: FDA-Public Use
  Company Number: PHHO2012US009812

PATIENT
  Sex: Female

DRUGS (2)
  1. SANDOSTATIN [Suspect]
     Indication: HEPATIC CIRRHOSIS
     Dosage: 30 MG, UNK
  2. SANDOSTATIN [Suspect]
     Indication: VARICES OESOPHAGEAL

REACTIONS (3)
  - DIARRHOEA [None]
  - BRONCHOPULMONARY ASPERGILLOSIS [None]
  - CONDITION AGGRAVATED [None]
